FAERS Safety Report 24361304 (Version 2)
Quarter: 2024Q3

REPORT INFORMATION
  Report Type: Spontaneous
  Country: VN (occurrence: VN)
  Receive Date: 20240925
  Receipt Date: 20240925
  Transmission Date: 20241017
  Serious: No
  Sender: ALKEM
  Company Number: VN-ALKEM LABORATORIES LIMITED-VN-ALKEM-2024-16657

PATIENT
  Age: 35 Year
  Sex: Female

DRUGS (6)
  1. CLOPIDOGREL [Suspect]
     Active Substance: CLOPIDOGREL BISULFATE
     Indication: Antiplatelet therapy
     Dosage: UNK
     Route: 065
  2. SALICYLIC ACID [Concomitant]
     Active Substance: SALICYLIC ACID
     Indication: Antiplatelet therapy
     Dosage: 300 MILLIGRAM
     Route: 065
  3. SALICYLIC ACID [Concomitant]
     Active Substance: SALICYLIC ACID
     Dosage: 81 MILLIGRAM, OD
     Route: 048
  4. TICAGRELOR [Concomitant]
     Active Substance: TICAGRELOR
     Indication: Antiplatelet therapy
     Dosage: 180 MILLIGRAM
     Route: 048
  5. TICAGRELOR [Concomitant]
     Active Substance: TICAGRELOR
     Dosage: 90 MILLIGRAM, BID
     Route: 048
  6. NIMODIPINE [Concomitant]
     Active Substance: NIMODIPINE
     Indication: Product used for unknown indication
     Dosage: 60 MILLIGRAM, (EVERY 4 HOURS)
     Route: 048

REACTIONS (1)
  - Drug resistance [Unknown]
